FAERS Safety Report 5929239-0 (Version None)
Quarter: 2008Q4

REPORT INFORMATION
  Report Type: 
  Country: None (occurrence: None)
  Receive Date: 20081023
  Receipt Date: 20081023
  Transmission Date: 20090506
  Serious: Yes (Life-Threatening)
  Sender: FDA-Public Use
  Company Number: None

PATIENT
  Age: 48 Year
  Sex: Female
  Weight: 78.4723 kg

DRUGS (4)
  1. CITALOPRAM HYDROBROMIDE [Suspect]
     Indication: DEPRESSION
     Dosage: 1 PILL QD PO
     Route: 048
     Dates: start: 20081006, end: 20081009
  2. CITALOPRAM HYDROBROMIDE [Suspect]
     Indication: PANIC ATTACK
     Dosage: 1 PILL QD PO
     Route: 048
     Dates: start: 20081006, end: 20081009
  3. CITALOPRAM HYDROBROMIDE [Suspect]
     Indication: DEPRESSION
     Dosage: 1 PILL QD PO
     Route: 048
     Dates: start: 20081009, end: 20081018
  4. CITALOPRAM HYDROBROMIDE [Suspect]
     Indication: PANIC ATTACK
     Dosage: 1 PILL QD PO
     Route: 048
     Dates: start: 20081009, end: 20081018

REACTIONS (44)
  - ABDOMINAL PAIN UPPER [None]
  - ABNORMAL BEHAVIOUR [None]
  - AGITATION [None]
  - ANGER [None]
  - ANGIOPATHY [None]
  - ANXIETY [None]
  - BLOOD PRESSURE INCREASED [None]
  - CONDITION AGGRAVATED [None]
  - CONTUSION [None]
  - CONVULSION [None]
  - ENERGY INCREASED [None]
  - FAECES DISCOLOURED [None]
  - FLUID INTAKE REDUCED [None]
  - HAEMATEMESIS [None]
  - HAEMATOCHEZIA [None]
  - HAEMORRHAGE [None]
  - HEART RATE INCREASED [None]
  - HEART RATE IRREGULAR [None]
  - HOSTILITY [None]
  - HYPOPHAGIA [None]
  - IMPULSIVE BEHAVIOUR [None]
  - INSOMNIA [None]
  - IRRITABILITY [None]
  - LOSS OF LIBIDO [None]
  - MELAENA [None]
  - MENTAL DISORDER [None]
  - MOOD ALTERED [None]
  - MUSCLE SPASMS [None]
  - MUSCULAR WEAKNESS [None]
  - NERVOUSNESS [None]
  - PALPITATIONS [None]
  - PANIC ATTACK [None]
  - RESTLESSNESS [None]
  - SEROTONIN SYNDROME [None]
  - SEXUAL DYSFUNCTION [None]
  - SPEECH DISORDER [None]
  - SUICIDAL IDEATION [None]
  - SUICIDE ATTEMPT [None]
  - SWELLING [None]
  - SYNCOPE [None]
  - TREMOR [None]
  - VEIN DISCOLOURATION [None]
  - VERBAL ABUSE [None]
  - WEIGHT DECREASED [None]
